FAERS Safety Report 5381672-4 (Version None)
Quarter: 2007Q3

REPORT INFORMATION
  Report Type: 
  Country: None (occurrence: None)
  Receive Date: 20070709
  Receipt Date: 20070627
  Transmission Date: 20080115
  Serious: Yes (Other)
  Sender: FDA-Public Use
  Company Number: IT-AMGEN-US232530

PATIENT
  Age: 59 Year
  Sex: Male

DRUGS (2)
  1. ENBREL [Suspect]
     Indication: PSORIASIS
     Route: 058
     Dates: start: 20051214, end: 20070310
  2. PRADIF [Concomitant]

REACTIONS (2)
  - CARCINOID SYNDROME [None]
  - CARCINOID TUMOUR PULMONARY [None]
